FAERS Safety Report 14617239 (Version 2)
Quarter: 2018Q2

REPORT INFORMATION
  Report Type: Spontaneous
  Country: DE (occurrence: DE)
  Receive Date: 20180309
  Receipt Date: 20180427
  Transmission Date: 20180711
  Serious: Yes (Other)
  Sender: FDA-Public Use
  Company Number: DE-TORRENT-00007906

PATIENT
  Sex: Female

DRUGS (1)
  1. MEMANTINE HYDROCHLORIDE. [Suspect]
     Active Substance: MEMANTINE HYDROCHLORIDE
     Indication: MACULAR DEGENERATION
     Dosage: STRICTLY FOLLOWING THE INSTRUCTIONS OF THE PACKAGE LEAFLET
     Dates: start: 20150401

REACTIONS (2)
  - Off label use [Unknown]
  - Ophthalmic vein thrombosis [Unknown]

NARRATIVE: CASE EVENT DATE: 20150401
